FAERS Safety Report 9240141 (Version 2)
Quarter: 2013Q2

REPORT INFORMATION
  Report Type: Spontaneous
  Country: CA (occurrence: CA)
  Receive Date: 20130418
  Receipt Date: 20130522
  Transmission Date: 20140414
  Serious: Yes (Hospitalization, Other)
  Sender: FDA-Public Use
  Company Number: CA-ALEXION PHARMACEUTICALS INC.-A201300555

PATIENT
  Age: 63 Year
  Sex: Female
  Weight: 58 kg

DRUGS (15)
  1. SOLIRIS 300MG [Suspect]
     Indication: PAROXYSMAL NOCTURNAL HAEMOGLOBINURIA
     Dosage: 600 MG, QW
     Route: 042
     Dates: start: 20110217, end: 20110309
  2. SOLIRIS 300MG [Suspect]
     Dosage: 900 MG, Q2W
     Route: 042
     Dates: start: 20110316
  3. ATIVAN [Suspect]
     Indication: PREMEDICATION
     Dosage: 5 MG, SINGLE
     Dates: start: 20130328, end: 20130328
  4. PREDNISONE [Concomitant]
     Indication: PAROXYSMAL NOCTURNAL HAEMOGLOBINURIA
     Dosage: 5 MG, QD
     Route: 048
     Dates: start: 200407
  5. ACTONEL [Concomitant]
     Indication: PROPHYLAXIS
     Dosage: 1 TAB, ONCE A WEEK
     Route: 048
     Dates: start: 20080207
  6. METFORMIN [Concomitant]
     Indication: DIABETES MELLITUS
     Dosage: 425 MG, QD
     Route: 048
     Dates: start: 20100801
  7. NOVOLIN 70/30 [Concomitant]
     Indication: DIABETES MELLITUS
     Dosage: 14 IU, QD
     Route: 058
     Dates: start: 20100801
  8. PANTOLOC [Concomitant]
     Indication: PROPHYLAXIS
     Dosage: 40 MG, QD
     Route: 048
     Dates: start: 20080201
  9. FOLIC ACID [Concomitant]
     Indication: PAROXYSMAL NOCTURNAL HAEMOGLOBINURIA
     Dosage: 5 MG, QD
     Route: 048
     Dates: start: 20050419
  10. FERROUS SULFATE [Concomitant]
     Indication: SUPPLEMENTATION THERAPY
     Dosage: 300 MG, QD
     Route: 048
     Dates: start: 20050419
  11. CALCITE D [Concomitant]
     Indication: SUPPLEMENTATION THERAPY
     Dosage: 500 MG, QD
     Route: 048
     Dates: start: 20080207
  12. VITAMIN D [Concomitant]
     Indication: SUPPLEMENTATION THERAPY
     Dosage: 400 MG, QD
     Route: 048
     Dates: start: 20080207
  13. VOLTAREN [Concomitant]
     Indication: TENDONITIS
     Dosage: ONE COAT, PRN
     Dates: start: 20110801
  14. STATEX [Concomitant]
     Indication: CHEST PAIN
     Dosage: 5 MG, PRN
     Route: 048
     Dates: start: 20130328, end: 20130329
  15. TYLENOL EXTRA STRENGTH [Concomitant]
     Indication: CHEST PAIN
     Dosage: 500 MG, PRN
     Route: 048
     Dates: start: 20130329

REACTIONS (7)
  - Road traffic accident [Recovered/Resolved]
  - Haemoglobin decreased [Recovered/Resolved]
  - Endodontic procedure [Unknown]
  - Tooth abscess [Not Recovered/Not Resolved]
  - Sensitivity of teeth [Not Recovered/Not Resolved]
  - Tooth infection [Recovered/Resolved]
  - Chest pain [Recovered/Resolved]
